FAERS Safety Report 13776109 (Version 1)
Quarter: 2017Q3

REPORT INFORMATION
  Report Type: Report from Study
  Country: US (occurrence: US)
  Receive Date: 20170720
  Receipt Date: 20170720
  Transmission Date: 20171127
  Serious: Yes (Other)
  Sender: FDA-Public Use
  Company Number: US-ALEXION PHARMACEUTICALS INC.-A201707823

PATIENT
  Sex: Female
  Weight: 23.58 kg

DRUGS (1)
  1. SOLIRIS [Suspect]
     Active Substance: ECULIZUMAB
     Indication: HAEMOLYTIC URAEMIC SYNDROME
     Dosage: UNK
     Route: 042

REACTIONS (7)
  - Infusion site erythema [Recovering/Resolving]
  - Crohn^s disease [Unknown]
  - Infusion site swelling [Recovering/Resolving]
  - Abdominal pain upper [Unknown]
  - Diarrhoea [Unknown]
  - Infusion site extravasation [Recovering/Resolving]
  - Infusion site pain [Recovering/Resolving]
